FAERS Safety Report 15786017 (Version 1)
Quarter: 2018Q4

REPORT INFORMATION
  Report Type: Spontaneous
  Country: US (occurrence: US)
  Receive Date: 20181212
  Receipt Date: 20181212
  Transmission Date: 20190205
  Serious: No
  Sender: FDA-Public Use
  Company Number: None

PATIENT
  Age: 36 Year
  Sex: Male
  Weight: 67 kg

DRUGS (1)
  1. DABIGATRAN [Suspect]
     Active Substance: DABIGATRAN
     Route: 048
     Dates: start: 20171215, end: 20181108

REACTIONS (4)
  - Deep vein thrombosis [None]
  - Drug ineffective [None]
  - Pulmonary embolism [None]
  - Diabetic ketoacidosis [None]

NARRATIVE: CASE EVENT DATE: 20181108
